FAERS Safety Report 24372333 (Version 1)
Quarter: 2024Q3

REPORT INFORMATION
  Report Type: Spontaneous
  Country: CY (occurrence: CY)
  Receive Date: 20240927
  Receipt Date: 20240927
  Transmission Date: 20241016
  Serious: Yes (Other)
  Sender: RANBAXY
  Company Number: CY-SUN PHARMACEUTICAL INDUSTRIES LTD-2024R1-469983

PATIENT
  Age: 49 Year
  Sex: Female

DRUGS (1)
  1. FLECAINIDE [Suspect]
     Active Substance: FLECAINIDE
     Indication: Product used for unknown indication
     Dosage: 100 MILLIGRAM, TID
     Route: 065

REACTIONS (2)
  - Toxicity to various agents [Unknown]
  - Hyponatraemia [Recovered/Resolved]
